FAERS Safety Report 24972733 (Version 1)
Quarter: 2025Q1

REPORT INFORMATION
  Report Type: Spontaneous
  Country: US (occurrence: US)
  Receive Date: 20250215
  Receipt Date: 20250215
  Transmission Date: 20250409
  Serious: Yes (Other)
  Sender: NOVITIUM PHARMA
  Company Number: US-NOVITIUMPHARMA-2025USNVP00364

PATIENT
  Age: 72 Year
  Sex: Female

DRUGS (14)
  1. PREDNISONE [Suspect]
     Active Substance: PREDNISONE
     Indication: Diffuse large B-cell lymphoma
  2. RITUXIMAB [Concomitant]
     Active Substance: RITUXIMAB
     Indication: Diffuse large B-cell lymphoma
  3. CYCLOPHOSPHAMIDE [Concomitant]
     Active Substance: CYCLOPHOSPHAMIDE
     Indication: Diffuse large B-cell lymphoma
  4. DOXORUBICIN [Concomitant]
     Active Substance: DOXORUBICIN
     Indication: Diffuse large B-cell lymphoma
  5. VINCRISTINE [Concomitant]
     Active Substance: VINCRISTINE
     Indication: Diffuse large B-cell lymphoma
  6. METHOTREXATE [Concomitant]
     Active Substance: METHOTREXATE
     Indication: Prophylaxis
  7. DEXAMETHASONE [Concomitant]
     Active Substance: DEXAMETHASONE
     Indication: Salvage therapy
  8. Loncastuximab-tesirine [Concomitant]
     Indication: Diffuse large B-cell lymphoma
  9. CYTARABINE [Concomitant]
     Active Substance: CYTARABINE
     Indication: Salvage therapy
  10. OXALIPLATIN [Concomitant]
     Active Substance: OXALIPLATIN
     Indication: Salvage therapy
  11. CARMUSTINE [Concomitant]
     Active Substance: CARMUSTINE
     Indication: Chemotherapy
  12. ETOPOSIDE [Concomitant]
     Active Substance: ETOPOSIDE
     Indication: Chemotherapy
  13. MELPHALAN [Concomitant]
     Active Substance: MELPHALAN
     Indication: Chemotherapy
  14. Polatuzumab/ Bendamustine [Concomitant]
     Indication: Stem cell transplant

REACTIONS (1)
  - Neuropathy peripheral [Unknown]
